FAERS Safety Report 25982090 (Version 1)
Quarter: 2025Q4

REPORT INFORMATION
  Report Type: Spontaneous
  Country: US (occurrence: US)
  Receive Date: 20251031
  Receipt Date: 20251031
  Transmission Date: 20260117
  Serious: No
  Sender: ABBVIE
  Company Number: US-ABBVIE-6525812

PATIENT
  Sex: Female

DRUGS (1)
  1. HUMIRA [Suspect]
     Active Substance: ADALIMUMAB
     Indication: Rheumatoid arthritis
     Dosage: STRENGTH: 40MG
     Route: 058

REACTIONS (4)
  - Nervousness [Unknown]
  - Wrong technique in product usage process [Not Recovered/Not Resolved]
  - Pain [Unknown]
  - Product quality issue [Not Recovered/Not Resolved]
